FAERS Safety Report 19915749 (Version 2)
Quarter: 2022Q1

REPORT INFORMATION
  Report Type: Spontaneous
  Country: US (occurrence: US)
  Receive Date: 20211005
  Receipt Date: 20220103
  Transmission Date: 20220424
  Serious: Yes (Death, Hospitalization)
  Sender: FDA-Public Use
  Company Number: US-TEVA-2021-US-1961169

PATIENT
  Age: 58 Year
  Sex: Male

DRUGS (6)
  1. MITOXANTRONE [Suspect]
     Active Substance: MITOXANTRONE HYDROCHLORIDE
     Indication: Myeloid leukaemia
     Route: 065
     Dates: start: 2019
  2. FILGRASTIM [Suspect]
     Active Substance: FILGRASTIM
     Indication: Prophylaxis
     Route: 065
     Dates: start: 2019
  3. VORICONAZOLE [Suspect]
     Active Substance: VORICONAZOLE
     Indication: Antifungal prophylaxis
     Route: 065
     Dates: start: 2019, end: 2019
  4. CYTARABINE [Suspect]
     Active Substance: CYTARABINE
     Indication: Myeloid leukaemia
     Route: 065
     Dates: start: 2019
  5. CIPROFLOXACIN [Concomitant]
     Active Substance: CIPROFLOXACIN
     Indication: Antibiotic prophylaxis
     Route: 065
     Dates: start: 2019
  6. ACYCLOVIR [Concomitant]
     Active Substance: ACYCLOVIR
     Indication: Antiviral prophylaxis
     Route: 065
     Dates: start: 2019

REACTIONS (7)
  - Neutropenia [Fatal]
  - Bronchopulmonary aspergillosis [Fatal]
  - Febrile neutropenia [Fatal]
  - Haemoptysis [Fatal]
  - Pulmonary artery aneurysm [Fatal]
  - Infective aneurysm [Fatal]
  - Drug ineffective [Fatal]

NARRATIVE: CASE EVENT DATE: 20190101
